FAERS Safety Report 13759478 (Version 1)
Quarter: 2017Q3

REPORT INFORMATION
  Report Type: Spontaneous
  Country: US (occurrence: US)
  Receive Date: 20170717
  Receipt Date: 20170717
  Transmission Date: 20171127
  Serious: Yes (Hospitalization)
  Sender: FDA-Public Use
  Company Number: None

PATIENT
  Age: 54 Year
  Sex: Female

DRUGS (16)
  1. ALBUTEROL. [Concomitant]
     Active Substance: ALBUTEROL
  2. CLARITIN-D NOS [Concomitant]
     Active Substance: LORATADINE\PSEUDOEPHEDRINE SULFATE
  3. METFORMIN [Concomitant]
     Active Substance: METFORMIN HYDROCHLORIDE
  4. TYLENOL [Concomitant]
     Active Substance: ACETAMINOPHEN
  5. KETORIF [Concomitant]
  6. VISTARIL [Concomitant]
     Active Substance: HYDROXYZINE PAMOATE
  7. FOLIC ACID. [Concomitant]
     Active Substance: FOLIC ACID
  8. LANTUS [Concomitant]
     Active Substance: INSULIN GLARGINE
  9. METHOTREXATE. [Concomitant]
     Active Substance: METHOTREXATE
  10. OXYCODONE AND ACETAMINOPHEN [Concomitant]
     Active Substance: ACETAMINOPHEN\OXYCODONE HYDROCHLORIDE
  11. FLONASE [Concomitant]
     Active Substance: FLUTICASONE PROPIONATE
  12. TRAMADOL. [Concomitant]
     Active Substance: TRAMADOL
  13. VITAMIN D3 [Concomitant]
     Active Substance: CHOLECALCIFEROL
  14. QVAR [Concomitant]
     Active Substance: BECLOMETHASONE DIPROPIONATE
  15. ENBREL [Suspect]
     Active Substance: ETANERCEPT
     Indication: PSORIATIC ARTHROPATHY
     Route: 058
     Dates: start: 20170523
  16. MULTI-VITAMIN [Concomitant]
     Active Substance: .ALPHA.-TOCOPHEROL ACETATE, DL-\ASCORBIC ACID\CYANOCOBALAMIN\FLUORIDE ION\FOLIC ACID\NIACIN\PYRIDOXINE\RIBOFLAVIN\THIAMINE\VITAMIN A\VITAMIN D

REACTIONS (3)
  - Drug dose omission [None]
  - Knee arthroplasty [None]
  - Condition aggravated [None]

NARRATIVE: CASE EVENT DATE: 20170629
